FAERS Safety Report 15802887 (Version 2)
Quarter: 2019Q1

REPORT INFORMATION
  Report Type: Spontaneous
  Country: AU (occurrence: AU)
  Receive Date: 20190109
  Receipt Date: 20190115
  Transmission Date: 20190417
  Serious: Yes (Life-Threatening, Hospitalization)
  Sender: FDA-Public Use
  Company Number: AU-PFIZER INC-2019010123

PATIENT
  Age: 36 Year
  Sex: Female

DRUGS (14)
  1. CLINDAMYCIN PHOSPHATE. [Suspect]
     Active Substance: CLINDAMYCIN PHOSPHATE
     Indication: IATROGENIC INFECTION
     Dosage: UNK
  2. CIPROFLOXACIN. [Suspect]
     Active Substance: CIPROFLOXACIN
     Indication: IATROGENIC INFECTION
     Dosage: UNK
  3. OSELTAMIVIR [Suspect]
     Active Substance: OSELTAMIVIR
     Indication: RHINITIS
     Dosage: UNK
  4. METRONIDAZOLE. [Suspect]
     Active Substance: METRONIDAZOLE
     Indication: CHOLECYSTITIS ACUTE
     Dosage: UNK
  5. BENZYLPENICILLIN [Suspect]
     Active Substance: PENICILLIN G
     Indication: IATROGENIC INFECTION
     Dosage: UNK
  6. OSELTAMIVIR [Suspect]
     Active Substance: OSELTAMIVIR
     Indication: PYREXIA
  7. ESCITALOPRAM [Concomitant]
     Active Substance: ESCITALOPRAM OXALATE
     Indication: CROHN^S DISEASE
     Dosage: UNK
  8. METRONIDAZOLE. [Suspect]
     Active Substance: METRONIDAZOLE
     Indication: BILE DUCT STONE
  9. TAZOCIN EF [Suspect]
     Active Substance: PIPERACILLIN SODIUM\TAZOBACTAM SODIUM
     Indication: IATROGENIC INFECTION
     Dosage: UNK
  10. CEPHALEXIN [CEFALEXIN] [Suspect]
     Active Substance: CEPHALEXIN
     Indication: RHINITIS
     Dosage: UNK
  11. MESALAZINE [Concomitant]
     Active Substance: MESALAMINE
     Indication: CROHN^S DISEASE
     Dosage: UNK, AS NEEDED, (AS NECESSARY)
  12. CEFTRIAXONE SODIUM. [Suspect]
     Active Substance: CEFTRIAXONE SODIUM
     Indication: CHOLECYSTITIS ACUTE
     Dosage: UNK
  13. CEPHALEXIN [CEFALEXIN] [Suspect]
     Active Substance: CEPHALEXIN
     Indication: PYREXIA
  14. CEFTRIAXONE SODIUM. [Suspect]
     Active Substance: CEFTRIAXONE SODIUM
     Indication: BILE DUCT STONE

REACTIONS (2)
  - Hepatitis infectious mononucleosis [Recovering/Resolving]
  - Drug-induced liver injury [Recovered/Resolved]
